FAERS Safety Report 23063643 (Version 6)
Quarter: 2024Q4

REPORT INFORMATION
  Report Type: Report from Study
  Country: US (occurrence: US)
  Receive Date: 20231013
  Receipt Date: 20241226
  Transmission Date: 20250114
  Serious: Yes (Other)
  Sender: INCYTE
  Company Number: US-INCYTE CORPORATION-2023IN010531

PATIENT

DRUGS (53)
  1. JAKAFI [Suspect]
     Active Substance: RUXOLITINIB
     Indication: Polycythaemia vera
     Dosage: 10 MILLIGRAM, BID
     Route: 065
     Dates: start: 202001
  2. JAKAFI [Suspect]
     Active Substance: RUXOLITINIB
     Dosage: 5MG IN THE MORNING AND 10MG IN THE EVENING
     Route: 065
  3. JAKAFI [Suspect]
     Active Substance: RUXOLITINIB
     Dosage: TAKE 15MG TABLET EVERY MORNING AND 25MG TABLETS EVERY EVENING
     Route: 048
  4. JAKAFI [Suspect]
     Active Substance: RUXOLITINIB
     Dosage: 10 MILLIGRAM, QPM
     Route: 048
  5. JAKAFI [Suspect]
     Active Substance: RUXOLITINIB
     Dosage: 15MG PER DAY, 5MG IN THE MORNING AND 10MG IN THE NIGHT
     Route: 065
     Dates: start: 20231204
  6. JAKAFI [Suspect]
     Active Substance: RUXOLITINIB
     Dosage: 5 MILLIGRAM, BID
     Route: 065
     Dates: start: 20240123
  7. JAKAFI [Suspect]
     Active Substance: RUXOLITINIB
     Dosage: 5 MILLIGRAM, BID
     Route: 065
     Dates: start: 20240123
  8. LISINOPRIL [Suspect]
     Active Substance: LISINOPRIL
     Indication: Product used for unknown indication
     Dosage: 40 MILLIGRAM
     Route: 065
  9. ALLOPURINOL [Concomitant]
     Active Substance: ALLOPURINOL
     Indication: Product used for unknown indication
     Dosage: 300 MILLIGRAM
     Route: 065
  10. ALLOPURINOL [Concomitant]
     Active Substance: ALLOPURINOL
     Dosage: 500 MILLIGRAM
     Route: 065
  11. SYNTHROID [Concomitant]
     Active Substance: LEVOTHYROXINE SODIUM
     Indication: Product used for unknown indication
     Dosage: UNK
     Route: 065
  12. FOLIC ACID [Concomitant]
     Active Substance: FOLIC ACID
     Indication: Product used for unknown indication
     Dosage: 800 MICROGRAM
     Route: 065
  13. FOLIC ACID [Concomitant]
     Active Substance: FOLIC ACID
     Dosage: 400 MICROGRAM
     Route: 065
  14. FOLIC ACID [Concomitant]
     Active Substance: FOLIC ACID
     Dosage: 1000 MICROGRAM
     Route: 065
  15. FOLIC ACID [Concomitant]
     Active Substance: FOLIC ACID
     Dosage: 1 MILLIGRAM
     Route: 065
  16. FOLIC ACID [Concomitant]
     Active Substance: FOLIC ACID
     Dosage: 0.4 MILLIGRAM
     Route: 065
  17. FOLIC ACID [Concomitant]
     Active Substance: FOLIC ACID
     Dosage: 0.8 MILLIGRAM
     Route: 065
  18. TURKEY TAIL MUSHROOM [Concomitant]
     Indication: Product used for unknown indication
     Dosage: UNK
     Route: 065
  19. ASPIRIN [Concomitant]
     Active Substance: ASPIRIN
     Indication: Product used for unknown indication
     Dosage: 81 MILLIGRAM
     Route: 065
  20. FISH OIL [Concomitant]
     Active Substance: FISH OIL
     Indication: Product used for unknown indication
     Dosage: 1200 MILLIGRAM
     Route: 065
  21. FISH OIL [Concomitant]
     Active Substance: FISH OIL
     Dosage: 1000 MILLIGRAM
     Route: 065
  22. LEVOTHYROXINE [Concomitant]
     Active Substance: LEVOTHYROXINE
     Indication: Product used for unknown indication
     Dosage: 300 MICROGRAM
     Route: 065
  23. MAGNESIUM [Concomitant]
     Active Substance: MAGNESIUM
     Indication: Product used for unknown indication
     Dosage: 300 MILLIGRAM
     Route: 065
  24. MAGNESIUM [Concomitant]
     Active Substance: MAGNESIUM
     Dosage: 250 MILLIGRAM
     Route: 065
  25. MAGNESIUM [Concomitant]
     Active Substance: MAGNESIUM
     Dosage: 500 MILLIGRAM
     Route: 065
  26. MAGNESIUM [Concomitant]
     Active Substance: MAGNESIUM
     Dosage: 100 MILLIGRAM
     Route: 065
  27. METHYLSULFONAL [Concomitant]
     Indication: Product used for unknown indication
     Dosage: UNK
     Route: 065
  28. CYANOCOBALAMIN [Concomitant]
     Active Substance: CYANOCOBALAMIN
     Indication: Product used for unknown indication
     Dosage: 500-400M
     Route: 065
  29. CYANOCOBALAMIN [Concomitant]
     Active Substance: CYANOCOBALAMIN
     Dosage: 50 MICROGRAM
     Route: 065
  30. CYANOCOBALAMIN [Concomitant]
     Active Substance: CYANOCOBALAMIN
     Dosage: 500 MICROGRAM
     Route: 065
  31. CYANOCOBALAMIN [Concomitant]
     Active Substance: CYANOCOBALAMIN
     Dosage: 100 MICROGRAM
     Route: 065
  32. CYANOCOBALAMIN [Concomitant]
     Active Substance: CYANOCOBALAMIN
     Dosage: 2500 MICROGRAM
     Route: 065
  33. CYANOCOBALAMIN [Concomitant]
     Active Substance: CYANOCOBALAMIN
     Dosage: 25 MICROGRAM
     Route: 065
  34. CYANOCOBALAMIN [Concomitant]
     Active Substance: CYANOCOBALAMIN
     Dosage: 1500 MICROGRAM
     Route: 065
  35. CYANOCOBALAMIN [Concomitant]
     Active Substance: CYANOCOBALAMIN
     Dosage: 1000 MICROGRAM
     Route: 065
  36. CYANOCOBALAMIN [Concomitant]
     Active Substance: CYANOCOBALAMIN
     Dosage: 250 MICROGRAM
     Route: 065
  37. VITAMIN D NOS [Concomitant]
     Active Substance: CHOLECALCIFEROL\ERGOCALCIFEROL
     Indication: Product used for unknown indication
     Dosage: 25 MCG(1000
     Route: 065
  38. ZINC [Concomitant]
     Active Substance: ZINC
     Indication: Product used for unknown indication
     Dosage: 100 MILLIGRAM
     Route: 065
  39. HELIOCARE ADVANCED [Concomitant]
     Indication: Product used for unknown indication
     Dosage: UNK
     Route: 065
  40. MSM [Concomitant]
     Active Substance: DIMETHYL SULFONE
     Indication: Product used for unknown indication
     Dosage: UNK
     Route: 065
  41. BIOTIN [Concomitant]
     Active Substance: BIOTIN
     Indication: Product used for unknown indication
     Dosage: UNK
     Route: 065
  42. BIOTIN [Concomitant]
     Active Substance: BIOTIN
     Dosage: 1000 MILLIGRAM
     Route: 065
  43. BIOTIN [Concomitant]
     Active Substance: BIOTIN
     Dosage: 5000 MILLIGRAM
     Route: 065
  44. BIOTIN [Concomitant]
     Active Substance: BIOTIN
     Dosage: 5 MILLIGRAM
     Route: 065
  45. CALCIUM;MAGNESIUM [Concomitant]
     Indication: Product used for unknown indication
     Dosage: UNK
     Route: 065
  46. BITTER MELON [MOMORDICA CHARANTIA] [Concomitant]
     Indication: Product used for unknown indication
     Dosage: UNK
     Route: 065
  47. GLUCOSAMINE [Concomitant]
     Active Substance: GLUCOSAMINE
     Indication: Product used for unknown indication
     Dosage: UNK
     Route: 065
  48. ALPHA LIPOIC ACID [Concomitant]
     Active Substance: .ALPHA.-LIPOIC ACID
     Indication: Product used for unknown indication
     Dosage: UNK
     Route: 065
  49. ALPHA LIPOIC ACID [Concomitant]
     Active Substance: .ALPHA.-LIPOIC ACID
     Dosage: 100 MILLIGRAM
     Route: 065
  50. ALPHA LIPOIC ACID [Concomitant]
     Active Substance: .ALPHA.-LIPOIC ACID
     Dosage: 200 MILLIGRAM
     Route: 065
  51. ALPHA LIPOIC ACID [Concomitant]
     Active Substance: .ALPHA.-LIPOIC ACID
     Dosage: 50 MILLIGRAM
     Route: 065
  52. HERBALS\TURMERIC [Concomitant]
     Active Substance: HERBALS\TURMERIC
     Indication: Product used for unknown indication
     Dosage: UNK
     Route: 065
  53. HERBALS\TURMERIC [Concomitant]
     Active Substance: HERBALS\TURMERIC
     Dosage: 500 MILLIGRAM
     Route: 065

REACTIONS (18)
  - Squamous cell carcinoma of skin [Recovered/Resolved]
  - Myelofibrosis [Unknown]
  - Splenomegaly [Recovering/Resolving]
  - Abdominal discomfort [Unknown]
  - Gout [Unknown]
  - Discomfort [Unknown]
  - Somnolence [Unknown]
  - Insomnia [Unknown]
  - Decreased appetite [Unknown]
  - Weight decreased [Recovering/Resolving]
  - Fatigue [Unknown]
  - Brain fog [Unknown]
  - Swollen tongue [Unknown]
  - Platelet count decreased [Unknown]
  - Diarrhoea [Unknown]
  - Muscle spasms [Unknown]
  - Disease progression [Unknown]
  - Drug ineffective [Unknown]
